FAERS Safety Report 10484071 (Version 2)
Quarter: 2015Q2

REPORT INFORMATION
  Report Type: Spontaneous
  Country: US (occurrence: None)
  Receive Date: 20140926
  Receipt Date: 20150528
  Transmission Date: 20150821
  Serious: Yes (Hospitalization, Other)
  Sender: FDA-Public Use
  Company Number: 2014HINLIT0856

PATIENT
  Age: 16 Year
  Sex: Female
  Weight: 59 kg

DRUGS (3)
  1. LEVETIRACTAM [Suspect]
     Active Substance: LEVETIRACETAM
     Indication: SEIZURE
  2. LACOSAMIDE (LACOSAMIDE) [Suspect]
     Active Substance: LACOSAMIDE
     Indication: SEIZURE
  3. CYCLOBENAZPRIN (CYCLOBENZAPRINE) [Suspect]
     Active Substance: CYCLOBENZAPRINE
     Indication: SEIZURE

REACTIONS (9)
  - Pulse absent [None]
  - Generalised tonic-clonic seizure [None]
  - Intentional overdose [None]
  - Sinus tachycardia [None]
  - Cardiac arrest [None]
  - Electrocardiogram QRS complex prolonged [None]
  - Suicide attempt [None]
  - Ventricular tachycardia [None]
  - Unresponsive to stimuli [None]
